FAERS Safety Report 7603328-7 (Version None)
Quarter: 2011Q3

REPORT INFORMATION
  Report Type: 
  Country: None (occurrence: None)
  Receive Date: 20110712
  Receipt Date: 20110629
  Transmission Date: 20111222
  Serious: Yes (Disabling, Other)
  Sender: FDA-Public Use
  Company Number: PHHY2011BR23453

PATIENT
  Sex: Female

DRUGS (1)
  1. AFINITOR [Suspect]
     Indication: RENAL CANCER
     Dosage: 1 DF/DAY
     Route: 048

REACTIONS (3)
  - MUSCULOSKELETAL PAIN [None]
  - FEELING ABNORMAL [None]
  - ARTHRALGIA [None]
